FAERS Safety Report 8294670 (Version 4)
Quarter: 2012Q4

REPORT INFORMATION
  Report Type: 
  Country: US (occurrence: None)
  Receive Date: 20111209
  Receipt Date: 20120914
  Transmission Date: 20130627
  Serious: Yes (Death, Other)
  Sender: FDA-Public Use
  Company Number: 2011AP002844

PATIENT
  Age: 69 Year
  Sex: Female

DRUGS (6)
  1. AMIODARONE HCL [Suspect]
     Indication: ATRIAL FIBRILLATION
     Dosage: ;IV
     Route: 042
  2. AMIODARONE HYDROCHLORIDE [Suspect]
     Indication: ATRIAL FIBRILLATION
     Dosage: 400 MG;TID;PO
     Route: 048
  3. COLCHICINE [Suspect]
     Indication: PERICARDITIS
     Dosage: 0.6 MG; BID; PO
     Route: 048
  4. AMOXICILLIN + CLAVULANATE POTASSIUM [Concomitant]
  5. CEFTRIAXONE [Concomitant]
  6. AZITHROMYCIN [Concomitant]

REACTIONS (11)
  - Nausea [None]
  - Vomiting [None]
  - Diarrhoea [None]
  - Leukocytosis [None]
  - Leukopenia [None]
  - Multi-organ failure [None]
  - Cardiogenic shock [None]
  - Cardiac arrest [None]
  - Toxicity to various agents [None]
  - Drug interaction [None]
  - Drug resistance [None]
